FAERS Safety Report 4390926-X (Version None)
Quarter: 2004Q3

REPORT INFORMATION
  Report Type: 
  Country: None (occurrence: None)
  Receive Date: 20040702
  Receipt Date: 20040702
  Transmission Date: 20050211
  Serious: No
  Sender: FDA-Public Use
  Company Number: None

PATIENT

DRUGS (1)
  1. HALDOL [Suspect]
     Dosage: 5 MG IM
     Route: 030

REACTIONS (4)
  - DYSKINESIA [None]
  - DYSTONIA [None]
  - MUSCULOSKELETAL STIFFNESS [None]
  - NECK PAIN [None]
